FAERS Safety Report 7194557-8 (Version None)
Quarter: 2010Q4

REPORT INFORMATION
  Report Type: 
  Country: None (occurrence: None)
  Receive Date: 20101223
  Receipt Date: 20100929
  Transmission Date: 20110411
  Serious: Yes (Hospitalization, Other)
  Sender: FDA-Public Use
  Company Number: US-AMGEN-KDL441927

PATIENT

DRUGS (2)
  1. ENBREL [Suspect]
     Indication: RHEUMATOID ARTHRITIS
     Dosage: 50 MG, QWK
     Dates: start: 20060101, end: 20100501
  2. METHOTREXATE [Concomitant]
     Dosage: UNK UNK, UNK

REACTIONS (2)
  - CELLULITIS [None]
  - NEUTROPHIL COUNT ABNORMAL [None]
